FAERS Safety Report 21999936 (Version 3)
Quarter: 2023Q2

REPORT INFORMATION
  Report Type: Spontaneous
  Country: US (occurrence: US)
  Receive Date: 20230216
  Receipt Date: 20230406
  Transmission Date: 20230722
  Serious: No
  Sender: FDA-Public Use
  Company Number: US-PFIZER INC-202300061980

PATIENT
  Age: 49 Year
  Sex: Female
  Weight: 97.52 kg

DRUGS (4)
  1. PREMARIN [Suspect]
     Active Substance: ESTROGENS, CONJUGATED
     Indication: Menopause
     Dosage: 5 MG, 2X/WEEK (5MG TWICE A WEEK)
     Route: 067
  2. PREMARIN [Suspect]
     Active Substance: ESTROGENS, CONJUGATED
     Indication: Vulvovaginal dryness
  3. PREMARIN [Suspect]
     Active Substance: ESTROGENS, CONJUGATED
     Indication: Vulvovaginal erythema
  4. PREMARIN [Suspect]
     Active Substance: ESTROGENS, CONJUGATED
     Indication: Vulvovaginal discomfort

REACTIONS (6)
  - Device difficult to use [Unknown]
  - Fear-related avoidance of activities [Unknown]
  - Fear of disease [Unknown]
  - Feeling abnormal [Unknown]
  - Infection [Unknown]
  - Off label use [Unknown]
